FAERS Safety Report 9275331 (Version 1)
Quarter: 2013Q2

REPORT INFORMATION
  Report Type: Spontaneous
  Country: US (occurrence: None)
  Receive Date: 20130501
  Receipt Date: 20130501
  Transmission Date: 20140414
  Serious: Yes (Other)
  Sender: FDA-Public Use
  Company Number: None

PATIENT
  Age: 31 Year
  Sex: Female
  Weight: 131.54 kg

DRUGS (2)
  1. CLONAZEPAM 1MG. ACCORD H [Suspect]
     Indication: ANXIETY
     Route: 048
     Dates: start: 201207
  2. ALPRAZOLAM [Suspect]
     Indication: ANXIETY
     Route: 048
     Dates: start: 2010

REACTIONS (2)
  - Panic attack [None]
  - Condition aggravated [None]
